FAERS Safety Report 8870060 (Version 3)
Quarter: 2014Q1

REPORT INFORMATION
  Report Type: Spontaneous
  Country: US (occurrence: None)
  Receive Date: 20120426
  Receipt Date: 20130107
  Transmission Date: 20141002
  Serious: No
  Sender: FDA-Public Use
  Company Number: PHEH2012US004491

PATIENT
  Age: 34 Year
  Sex: Female

DRUGS (3)
  1. GILENYA [Suspect]
     Indication: MULTIPLE SCLEROSIS
     Route: 048
     Dates: start: 20120217
  2. VITAMIN D (ERGOCALCIFEROL) [Concomitant]
  3. NAPROXEN (NAPROXEN) [Concomitant]

REACTIONS (11)
  - Nervousness [None]
  - Somnolence [None]
  - Fatigue [None]
  - Multiple sclerosis [None]
  - Hypoaesthesia [None]
  - Conjunctivitis [None]
  - Pain in extremity [None]
  - Visual impairment [None]
  - Rash [None]
  - Paraesthesia [None]
  - Headache [None]
